FAERS Safety Report 7651407-0 (Version None)
Quarter: 2011Q3

REPORT INFORMATION
  Report Type: 
  Country: None (occurrence: None)
  Receive Date: 20110802
  Receipt Date: 20110722
  Transmission Date: 20111222
  Serious: Yes (Other)
  Sender: FDA-Public Use
  Company Number: PHEH2009US02401

PATIENT
  Sex: Female

DRUGS (9)
  1. MECLIZINE [Concomitant]
  2. LIPITOR [Concomitant]
  3. ASPIRIN [Concomitant]
  4. PRILOSEC [Concomitant]
  5. FEMARA [Concomitant]
  6. ZOMETA [Suspect]
  7. DIOVAN [Concomitant]
  8. TAMOXIFEN CITRATE [Concomitant]
  9. CALCIUM ACETATE [Concomitant]

REACTIONS (29)
  - INTERVERTEBRAL DISC DEGENERATION [None]
  - HIATUS HERNIA [None]
  - HYPERLIPIDAEMIA [None]
  - DIARRHOEA [None]
  - DIZZINESS [None]
  - ENDOMETRIAL HYPERPLASIA [None]
  - DYSPHAGIA [None]
  - PRESBYOESOPHAGUS [None]
  - JOINT SWELLING [None]
  - CHONDROMALACIA [None]
  - OSTEOPENIA [None]
  - BONE LOSS [None]
  - OSTEONECROSIS OF JAW [None]
  - INFECTION [None]
  - OSTEOARTHRITIS [None]
  - INTERVERTEBRAL DISC SPACE NARROWING [None]
  - PAIN [None]
  - DEFORMITY [None]
  - RENAL FAILURE [None]
  - URINARY TRACT INFECTION [None]
  - DYSKINESIA [None]
  - CERVICAL SPINAL STENOSIS [None]
  - ARTHRALGIA [None]
  - DYSURIA [None]
  - BLOOD URINE PRESENT [None]
  - GASTRITIS [None]
  - HYPERTENSION [None]
  - GASTROOESOPHAGEAL REFLUX DISEASE [None]
  - SCOLIOSIS [None]
